FAERS Safety Report 25472647 (Version 1)
Quarter: 2025Q2

REPORT INFORMATION
  Report Type: Spontaneous
  Country: IT (occurrence: IT)
  Receive Date: 20250624
  Receipt Date: 20250624
  Transmission Date: 20250716
  Serious: Yes (Life-Threatening)
  Sender: HIKMA
  Company Number: None

PATIENT
  Age: 64 Year
  Sex: Female
  Weight: 60 kg

DRUGS (7)
  1. CARBOPLATIN [Suspect]
     Active Substance: CARBOPLATIN
     Indication: Chemotherapy
     Dosage: 500 MILLIGRAM, 3W
     Route: 042
     Dates: start: 20240817
  2. CIMETIDINE [Concomitant]
     Active Substance: CIMETIDINE
     Indication: Chemotherapy side effect prophylaxis
     Dosage: 200 MILLIGRAM, 3W
     Route: 042
     Dates: start: 20240917
  3. FOSAPREPITANT ACCORD [Concomitant]
     Indication: Chemotherapy side effect prophylaxis
     Dosage: 150 MILLIGRAM, 3W
     Route: 042
     Dates: start: 20240917
  4. PALONOSETRON DR. REDDY^S [Concomitant]
     Indication: Chemotherapy side effect prophylaxis
     Route: 042
     Dates: start: 20240917
  5. DEXAMETHASONE [Concomitant]
     Active Substance: DEXAMETHASONE
     Indication: Chemotherapy side effect prophylaxis
     Dosage: 12 MILLIGRAM, 3W
     Route: 042
     Dates: start: 20240917
  6. TRIMETON [Concomitant]
     Active Substance: CHLORPHENIRAMINE MALEATE
     Indication: Chemotherapy side effect prophylaxis
     Dosage: 10 MILLIGRAM, 3W
     Route: 042
     Dates: start: 20240917
  7. PACLITAXEL [Interacting]
     Active Substance: PACLITAXEL
     Indication: Chemotherapy
     Dosage: 280 MILLIGRAM, 3W
     Route: 042
     Dates: start: 20240817, end: 20240817

REACTIONS (6)
  - Tremor [Recovered/Resolved]
  - Vision blurred [Recovered/Resolved]
  - Hyperhidrosis [Recovered/Resolved]
  - Tachycardia [Recovered/Resolved]
  - Diarrhoea [Recovered/Resolved]
  - Abdominal pain [Recovered/Resolved]

NARRATIVE: CASE EVENT DATE: 20240917
